FAERS Safety Report 6217688-5 (Version None)
Quarter: 2009Q2

REPORT INFORMATION
  Report Type: 
  Country: None (occurrence: None)
  Receive Date: 20090603
  Receipt Date: 20090603
  Transmission Date: 20091009
  Serious: No
  Sender: FDA-Public Use
  Company Number: None

PATIENT
  Sex: Male
  Weight: 74.8435 kg

DRUGS (1)
  1. FLUOXETINE [Suspect]
     Indication: MAJOR DEPRESSION
     Dosage: BEFORE 10/2000 UNTIL 2/2002
     Dates: start: 20001001, end: 20020201

REACTIONS (2)
  - DEPRESSION [None]
  - PRODUCT SUBSTITUTION ISSUE [None]
